FAERS Safety Report 10504163 (Version 6)
Quarter: 2015Q3

REPORT INFORMATION
  Report Type: Spontaneous
  Country: JP (occurrence: JP)
  Receive Date: 20141008
  Receipt Date: 20150715
  Transmission Date: 20151125
  Serious: Yes (Hospitalization)
  Sender: FDA-Public Use
  Company Number: JP-ACTELION-A-CH2014-105991

PATIENT
  Age: 17 Year
  Sex: Male

DRUGS (15)
  1. VELETRI [Suspect]
     Active Substance: EPOPROSTENOL
     Dosage: 35 NG/KG, PER MIN
     Route: 042
     Dates: start: 20140925, end: 20141001
  2. VELETRI [Suspect]
     Active Substance: EPOPROSTENOL
     Dosage: 28.6 NG/KG, PER MIN
     Route: 042
     Dates: start: 20140116, end: 20140219
  3. TRACLEER [Concomitant]
     Active Substance: BOSENTAN
     Indication: PULMONARY ARTERIAL HYPERTENSION
  4. VELETRI [Suspect]
     Active Substance: EPOPROSTENOL
     Dosage: 29.6 NG/KG, PER MIN
     Route: 042
     Dates: start: 20140220, end: 20140319
  5. VELETRI [Suspect]
     Active Substance: EPOPROSTENOL
     Dosage: 31.4 NG/KG, PER MIN
     Route: 042
     Dates: start: 20140417, end: 20140514
  6. FUROSEMIDE. [Concomitant]
     Active Substance: FUROSEMIDE
  7. VELETRI [Suspect]
     Active Substance: EPOPROSTENOL
     Dosage: 30.5 NG/KG, PER MIN
     Route: 042
     Dates: start: 20140320, end: 20140416
  8. WARFARIN POTASSIUM [Concomitant]
     Active Substance: WARFARIN POTASSIUM
  9. VELETRI [Suspect]
     Active Substance: EPOPROSTENOL
     Dosage: 24 NG/KG, PER MIN
     Route: 042
     Dates: start: 20131127, end: 20131211
  10. VELETRI [Suspect]
     Active Substance: EPOPROSTENOL
     Indication: PULMONARY ARTERIAL HYPERTENSION
     Dosage: 34.7 NG/KG, PER MIN
     Route: 042
     Dates: start: 20140619, end: 20140924
  11. SPIRONOLACTONE. [Concomitant]
     Active Substance: SPIRONOLACTONE
  12. OXYGEN. [Concomitant]
     Active Substance: OXYGEN
  13. VELETRI [Suspect]
     Active Substance: EPOPROSTENOL
     Dosage: 27.5 NG/KG, PER MIN
     Route: 042
     Dates: start: 20131212, end: 20140115
  14. VELETRI [Suspect]
     Active Substance: EPOPROSTENOL
     Dosage: 32 NG/KG, PER MIN
     Route: 042
     Dates: start: 20140515, end: 20140618
  15. DIGOXIN. [Concomitant]
     Active Substance: DIGOXIN

REACTIONS (5)
  - Product quality issue [Recovered/Resolved]
  - Device deposit issue [Recovered/Resolved]
  - Catheter site haemorrhage [Recovered/Resolved]
  - Device occlusion [Recovered/Resolved]
  - Catheter removal [Recovered/Resolved]

NARRATIVE: CASE EVENT DATE: 20140730
